FAERS Safety Report 7494788-3 (Version None)
Quarter: 2011Q2

REPORT INFORMATION
  Report Type: 
  Country: None (occurrence: None)
  Receive Date: 20110520
  Receipt Date: 20110510
  Transmission Date: 20111010
  Serious: Yes (Death, Hospitalization)
  Sender: FDA-Public Use
  Company Number: A0889208A

PATIENT
  Sex: Female
  Weight: 159.1 kg

DRUGS (1)
  1. AVANDIA [Suspect]
     Dosage: 4MG PER DAY
     Route: 048

REACTIONS (5)
  - VIRAL INFECTION [None]
  - ANGINA UNSTABLE [None]
  - CARDIOMYOPATHY [None]
  - MYOCARDIAL INFARCTION [None]
  - CORONARY ARTERY DISEASE [None]
